FAERS Safety Report 14153886 (Version 1)
Quarter: 2017Q4

REPORT INFORMATION
  Report Type: Spontaneous
  Country: ES (occurrence: ES)
  Receive Date: 20171102
  Receipt Date: 20171102
  Transmission Date: 20180321
  Serious: Yes (Death, Other)
  Sender: FDA-Public Use
  Company Number: ES-CELGENEUS-ESP-2015123536

PATIENT
  Age: 82 Year
  Sex: Female

DRUGS (4)
  1. ABRAXANE [Suspect]
     Active Substance: PACLITAXEL
     Route: 041
     Dates: start: 20151014
  2. GEMCITABINE [Concomitant]
     Active Substance: GEMCITABINE\GEMCITABINE HYDROCHLORIDE
     Indication: ADENOCARCINOMA PANCREAS
     Route: 065
     Dates: start: 201508, end: 20150930
  3. GEMCITABINE [Concomitant]
     Active Substance: GEMCITABINE\GEMCITABINE HYDROCHLORIDE
     Route: 065
     Dates: start: 20151014
  4. ABRAXANE [Suspect]
     Active Substance: PACLITAXEL
     Indication: ADENOCARCINOMA PANCREAS
     Dosage: 125 MILLIGRAM/SQ. METER
     Route: 041
     Dates: start: 20150805, end: 20150930

REACTIONS (7)
  - Pneumonitis [Recovered/Resolved]
  - Pyrexia [Recovered/Resolved]
  - Cough [Recovered/Resolved]
  - Dyspnoea [Recovered/Resolved]
  - General physical health deterioration [Fatal]
  - Disease progression [Fatal]
  - Neutrophil count abnormal [Recovered/Resolved]

NARRATIVE: CASE EVENT DATE: 20150919
